FAERS Safety Report 9513590 (Version 4)
Quarter: 2014Q1

REPORT INFORMATION
  Report Type: Spontaneous
  Country: US (occurrence: US)
  Receive Date: 20130910
  Receipt Date: 20140130
  Transmission Date: 20141002
  Serious: Yes (Hospitalization)
  Sender: FDA-Public Use
  Company Number: US-GLAXOSMITHKLINE-A1040648A

PATIENT
  Age: 67 Year
  Sex: Female

DRUGS (16)
  1. ADVAIR [Suspect]
     Indication: ASTHMA
     Dosage: 1PUFF TWICE PER DAY
     Route: 055
     Dates: start: 2003, end: 20130904
  2. CLARITIN [Concomitant]
  3. MUCINEX [Concomitant]
  4. L-LYSINE [Concomitant]
  5. BIOTENE MOUTHWASH [Concomitant]
  6. MVI [Concomitant]
  7. LIPITOR [Concomitant]
  8. CALCIUM [Concomitant]
  9. PROZAC [Concomitant]
  10. PRIMIDONE [Concomitant]
  11. NEXIUM [Concomitant]
  12. ASPIRIN [Concomitant]
  13. FLONASE [Concomitant]
  14. AMBIEN [Concomitant]
  15. ONDANSETRON [Concomitant]
  16. STOOL SOFTENER [Concomitant]

REACTIONS (5)
  - Oesophageal candidiasis [Recovering/Resolving]
  - Oesophageal pain [Recovering/Resolving]
  - Abdominal pain upper [Recovering/Resolving]
  - Back pain [Recovering/Resolving]
  - Product quality issue [Unknown]
